FAERS Safety Report 11247465 (Version 2)
Quarter: 2019Q2

REPORT INFORMATION
  Report Type: Report from Study
  Country: GB (occurrence: GB)
  Receive Date: 20150708
  Receipt Date: 20190509
  Transmission Date: 20190711
  Serious: Yes (Death, Other)
  Sender: FDA-Public Use
  Company Number: GB-ROCHE-1602056

PATIENT

DRUGS (5)
  1. ALTEPLASE. [Suspect]
     Active Substance: ALTEPLASE
     Dosage: IN EACH OF THE NEXT 2 HOURS
     Route: 042
  2. ALTEPLASE. [Suspect]
     Active Substance: ALTEPLASE
     Indication: ACUTE MYOCARDIAL INFARCTION
     Dosage: BOLUS
     Route: 042
  3. ALTEPLASE. [Suspect]
     Active Substance: ALTEPLASE
     Dosage: IN 1 HOUR
     Route: 042
  4. HEPARIN [Concomitant]
     Active Substance: HEPARIN SODIUM
     Indication: ACUTE MYOCARDIAL INFARCTION
     Dosage: BOLUS DOSE OF 5000 UNITS
     Route: 042
  5. HEPARIN [Concomitant]
     Active Substance: HEPARIN SODIUM
     Dosage: 1000 UNITS/HOUR FOR 21 HOURS
     Route: 042

REACTIONS (10)
  - Myocardial infarction [Fatal]
  - Bradycardia [Unknown]
  - Chest pain [Unknown]
  - Cerebrovascular accident [Unknown]
  - Ventricular arrhythmia [Unknown]
  - Haemorrhagic stroke [Fatal]
  - Aortic aneurysm [Fatal]
  - Infarction [Fatal]
  - Hypotension [Unknown]
  - Embolic stroke [Fatal]
